FAERS Safety Report 6771858-6 (Version None)
Quarter: 2010Q2

REPORT INFORMATION
  Report Type: 
  Country: None (occurrence: None)
  Receive Date: 20100616
  Receipt Date: 20100302
  Transmission Date: 20101027
  Serious: No
  Sender: FDA-Public Use
  Company Number: US-ASTRAZENECA-2010SE09030

PATIENT
  Age: 341 Month
  Sex: Female
  Weight: 72.6 kg

DRUGS (8)
  1. ENTOCORT EC [Suspect]
     Indication: CROHN'S DISEASE
     Route: 048
     Dates: start: 20090201, end: 20090401
  2. ENTOCORT EC [Suspect]
     Route: 048
     Dates: start: 20090401, end: 20090801
  3. ENTOCORT EC [Suspect]
     Route: 048
     Dates: start: 20090801
  4. ASACOL [Concomitant]
  5. LEVBID [Concomitant]
  6. YASMIN [Concomitant]
  7. REMERON [Concomitant]
  8. ANTIDEPRESSANT [Concomitant]

REACTIONS (6)
  - ABDOMINAL PAIN [None]
  - CONSTIPATION [None]
  - FLATULENCE [None]
  - INFREQUENT BOWEL MOVEMENTS [None]
  - IRRITABILITY [None]
  - WEIGHT INCREASED [None]
